FAERS Safety Report 9921204 (Version 1)
Quarter: 2014Q1

REPORT INFORMATION
  Report Type: Report from Study
  Country: MX (occurrence: MX)
  Receive Date: 20140225
  Receipt Date: 20140225
  Transmission Date: 20141002
  Serious: Yes (Death, Hospitalization, Disabling)
  Sender: FDA-Public Use
  Company Number: MX-ORION CORPORATION ORION PHARMA-ENTC2014-0073

PATIENT
  Age: 70 Year
  Sex: Female

DRUGS (1)
  1. STALEVO [Suspect]
     Indication: PARKINSON^S DISEASE
     Dosage: STRENGTH: 150/37.5/200 MG
     Route: 048

REACTIONS (4)
  - Colon cancer [Fatal]
  - General physical health deterioration [Not Recovered/Not Resolved]
  - Akinesia [Not Recovered/Not Resolved]
  - Impaired self-care [Not Recovered/Not Resolved]
